FAERS Safety Report 24864809 (Version 1)
Quarter: 2025Q1

REPORT INFORMATION
  Report Type: Spontaneous
  Country: NP (occurrence: NP)
  Receive Date: 20250121
  Receipt Date: 20250121
  Transmission Date: 20250408
  Serious: Yes (Hospitalization, Other)
  Sender: Kenvue
  Company Number: NP-KENVUE-20250103702

PATIENT

DRUGS (5)
  1. TYLENOL [Suspect]
     Active Substance: ACETAMINOPHEN
     Indication: Pain
     Dosage: 1000 MILLIGRAM, THRICE A DAY
     Route: 065
  2. CLARITHROMYCIN [Suspect]
     Active Substance: CLARITHROMYCIN
     Indication: Helicobacter infection
     Dosage: 500 MILLIGRAM, TWICE A DAY
     Route: 065
  3. CEFIXIME [Suspect]
     Active Substance: CEFIXIME
     Indication: Pain
     Dosage: 200 MILLIGRAM, TWICE A DAY
     Route: 065
  4. ESOMEPRAZOLE [Suspect]
     Active Substance: ESOMEPRAZOLE
     Indication: Helicobacter infection
     Dosage: 20 MILLIGRAM, TWICE A DAY
     Route: 065
  5. AMOXICILLIN [Suspect]
     Active Substance: AMOXICILLIN
     Indication: Helicobacter infection
     Dosage: 1 GRAM, TWICE A DAY
     Route: 065

REACTIONS (2)
  - Liver injury [Recovered/Resolved]
  - Off label use [Unknown]
